FAERS Safety Report 7880586-5 (Version None)
Quarter: 2011Q4

REPORT INFORMATION
  Report Type: 
  Country: None (occurrence: None)
  Receive Date: 20111101
  Receipt Date: 20101004
  Transmission Date: 20120403
  Serious: No
  Sender: FDA-Public Use
  Company Number: US-BAYER-201036343NA

PATIENT
  Age: 71 Year
  Sex: Male
  Weight: 75 kg

DRUGS (3)
  1. FLOMAX [Concomitant]
     Dosage: UNK UNK, ONCE
  2. ULTRAVIST 240 [Suspect]
     Indication: COMPUTERISED TOMOGRAM ABDOMEN
  3. ULTRAVIST 240 [Suspect]
     Indication: HAEMATURIA
     Dosage: RIGHT ANTECUBITAL USING WARMER AND POWER INJECTOR @ A RATE OF 3.0 CC/SECOND
     Route: 042
     Dates: start: 20101004, end: 20101004

REACTIONS (1)
  - URTICARIA [None]
